FAERS Safety Report 24719485 (Version 2)
Quarter: 2024Q4

REPORT INFORMATION
  Report Type: Spontaneous
  Country: US (occurrence: US)
  Receive Date: 20241211
  Receipt Date: 20241220
  Transmission Date: 20250115
  Serious: No
  Sender: BOEHRINGER INGELHEIM
  Company Number: US-Komodo Health-a23aa000004dVo1AAE

PATIENT
  Sex: Female

DRUGS (1)
  1. SPEVIGO [Suspect]
     Active Substance: SPESOLIMAB-SBZO
     Indication: Psoriasis

REACTIONS (2)
  - Psoriasis [Unknown]
  - Off label use [Unknown]
